FAERS Safety Report 7383301-7 (Version None)
Quarter: 2011Q1

REPORT INFORMATION
  Report Type: 
  Country: None (occurrence: None)
  Receive Date: 20110325
  Receipt Date: 20110325
  Transmission Date: 20110831
  Serious: Yes (Hospitalization)
  Sender: FDA-Public Use
  Company Number: None

PATIENT
  Age: 59 Year
  Sex: Female
  Weight: 126.4 kg

DRUGS (32)
  1. NEXIUM [Concomitant]
  2. LEVOTHYROXINE [Concomitant]
  3. METOPROLOL TARTRATE [Concomitant]
  4. COLACE [Concomitant]
  5. DIGOXIN [Suspect]
     Indication: CARDIAC FAILURE CONGESTIVE
     Dosage: 0.125MG DAILY PO  CHRONIC
     Route: 048
  6. CARDIZEM CD [Concomitant]
  7. SALINE NS [Concomitant]
  8. SLOW MAG [Concomitant]
  9. SIMVASTATIN [Concomitant]
  10. ZAROXOLYN [Concomitant]
  11. FLEXERIL [Concomitant]
  12. SERTRALINE HYDROCHLORIDE [Concomitant]
  13. VIT B12 [Concomitant]
  14. VERAMYST [Concomitant]
  15. COMBIVENT [Concomitant]
  16. ASPIRIN [Concomitant]
  17. MIRAPEX [Concomitant]
  18. COLCHICINE [Concomitant]
  19. ZYRTEC [Concomitant]
  20. MIRAPEX CYMB [Concomitant]
  21. ULTRAM [Concomitant]
  22. ZINC SULFATE [Concomitant]
  23. LANTUS [Concomitant]
  24. ASCORBIC ACID [Concomitant]
  25. BUMESE [Concomitant]
  26. NOVOLOG [Concomitant]
  27. METHADONE [Concomitant]
  28. FIORICET [Concomitant]
  29. EPIPEN [Concomitant]
  30. M.V.I. [Concomitant]
  31. KLOR-CON [Concomitant]
  32. ULORIC [Concomitant]

REACTIONS (7)
  - PAIN IN EXTREMITY [None]
  - OSTEOARTHRITIS [None]
  - ABASIA [None]
  - CARDIOACTIVE DRUG LEVEL INCREASED [None]
  - ASTHENIA [None]
  - TOXICITY TO VARIOUS AGENTS [None]
  - HEART RATE DECREASED [None]
